FAERS Safety Report 10246594 (Version 4)
Quarter: 2015Q2

REPORT INFORMATION
  Report Type: Spontaneous
  Country: US (occurrence: US)
  Receive Date: 20140619
  Receipt Date: 20150403
  Transmission Date: 20150821
  Serious: Yes (Hospitalization, Disabling)
  Sender: FDA-Public Use
  Company Number: US-009507513-1406USA007850

PATIENT
  Sex: Male

DRUGS (3)
  1. PROPECIA [Suspect]
     Active Substance: FINASTERIDE
     Indication: ALOPECIA
     Dosage: 1 MG, QD
     Route: 048
     Dates: start: 200010, end: 200011
  2. PROPECIA [Suspect]
     Active Substance: FINASTERIDE
     Dosage: 1 MG, QD
     Route: 048
     Dates: start: 200312, end: 20040302
  3. PROPECIA [Suspect]
     Active Substance: FINASTERIDE
     Indication: ANDROGENETIC ALOPECIA
     Dosage: 1 MG, QD
     Route: 048
     Dates: start: 200108, end: 200311

REACTIONS (28)
  - Ejaculation failure [Not Recovered/Not Resolved]
  - Penile size reduced [Unknown]
  - Drug hypersensitivity [Unknown]
  - Alopecia [Unknown]
  - Tenosynovitis stenosans [Unknown]
  - Premature ejaculation [Not Recovered/Not Resolved]
  - Erectile dysfunction [Not Recovered/Not Resolved]
  - Appendicitis [Unknown]
  - Dysphagia [Unknown]
  - Adverse event [Unknown]
  - Cognitive disorder [Not Recovered/Not Resolved]
  - Sexual dysfunction [Not Recovered/Not Resolved]
  - Depression [Not Recovered/Not Resolved]
  - Papilloma viral infection [Unknown]
  - Anxiety [Not Recovered/Not Resolved]
  - Libido decreased [Not Recovered/Not Resolved]
  - Body tinea [Unknown]
  - Pyrexia [Unknown]
  - Drug hypersensitivity [Recovered/Resolved]
  - Attention deficit/hyperactivity disorder [Recovered/Resolved]
  - Oral herpes [Unknown]
  - Feeling abnormal [Not Recovered/Not Resolved]
  - Obesity [Unknown]
  - Alcohol use [Unknown]
  - Acne [Recovering/Resolving]
  - Emotional distress [Not Recovered/Not Resolved]
  - Nasal congestion [Unknown]
  - Dermatitis [Recovering/Resolving]

NARRATIVE: CASE EVENT DATE: 200010
